FAERS Safety Report 14631575 (Version 1)
Quarter: 2018Q1

REPORT INFORMATION
  Report Type: Spontaneous
  Country: GB (occurrence: GB)
  Receive Date: 20180313
  Receipt Date: 20180313
  Transmission Date: 20180509
  Serious: Yes (Other)
  Sender: FDA-Public Use
  Company Number: GB-JNJFOC-20180313680

PATIENT
  Age: 60 Year
  Sex: Male

DRUGS (5)
  1. XARELTO [Suspect]
     Active Substance: RIVAROXABAN
     Indication: CARDIAC ABLATION
     Route: 048
     Dates: start: 20180123, end: 20180206
  2. SOLIFENACIN [Concomitant]
     Active Substance: SOLIFENACIN
     Route: 065
  3. ROSUVASTATIN. [Concomitant]
     Active Substance: ROSUVASTATIN
     Route: 065
  4. BISOPROLOL [Concomitant]
     Active Substance: BISOPROLOL
     Route: 065
  5. FLECAINIDE [Concomitant]
     Active Substance: FLECAINIDE
     Route: 065

REACTIONS (2)
  - Impaired healing [Unknown]
  - Contusion [Recovered/Resolved]
